FAERS Safety Report 4431136-7 (Version None)
Quarter: 2004Q3

REPORT INFORMATION
  Report Type: 
  Country: None (occurrence: None)
  Receive Date: 20040818
  Receipt Date: 20040804
  Transmission Date: 20050211
  Serious: Yes (Other)
  Sender: FDA-Public Use
  Company Number: FLUV00304001915

PATIENT
  Age: 31 Year
  Sex: Female
  Weight: 51 kg

DRUGS (7)
  1. FLUVOXAMINE MALEATE [Suspect]
     Indication: DEPRESSION
     Dosage: 25 MG DAILY PO
     Route: 048
     Dates: start: 20040528, end: 20040602
  2. RIZE (CLOTIAZEPAM) [Concomitant]
  3. DEPAS (ETIZOLAM) [Concomitant]
  4. ALPRAZOLAM [Concomitant]
  5. ZANTAC [Concomitant]
  6. GASMOTIN (MOSAPRIDE CITRATE) [Concomitant]
  7. VOLTAREN [Concomitant]

REACTIONS (22)
  - ABDOMINAL PAIN [None]
  - ADRENAL DISORDER [None]
  - ANOREXIA [None]
  - ANXIETY DISORDER [None]
  - BLOOD BILIRUBIN INCREASED [None]
  - BLOOD CALCIUM DECREASED [None]
  - BLOOD POTASSIUM DECREASED [None]
  - BLOOD PRESSURE DIASTOLIC INCREASED [None]
  - DEPRESSION [None]
  - DIFFERENTIAL WHITE BLOOD CELL COUNT ABNORMAL [None]
  - DYSURIA [None]
  - EOSINOPHIL COUNT DECREASED [None]
  - GASTRITIS EROSIVE [None]
  - GLUCOSE URINE [None]
  - HEART RATE INCREASED [None]
  - HEPATIC ENZYME INCREASED [None]
  - ILEUS [None]
  - INAPPROPRIATE ANTIDIURETIC HORMONE SECRETION [None]
  - MONOCYTE COUNT INCREASED [None]
  - PAIN [None]
  - PREMENSTRUAL SYNDROME [None]
  - REFUSAL OF TREATMENT BY PATIENT [None]
